FAERS Safety Report 4665490-8 (Version None)
Quarter: 2005Q2

REPORT INFORMATION
  Report Type: 
  Country: None (occurrence: None)
  Receive Date: 20050519
  Receipt Date: 20041119
  Transmission Date: 20051028
  Serious: No
  Sender: FDA-Public Use
  Company Number: US-BRISTOL-MYERS SQUIBB COMPANY-12772844

PATIENT
  Sex: Male

DRUGS (3)
  1. CYTOXAN [Suspect]
     Route: 042
     Dates: start: 20041021, end: 20041021
  2. DECADRON [Concomitant]
     Indication: PREMEDICATION
     Route: 042
  3. KYTRIL [Concomitant]
     Indication: PREMEDICATION
     Route: 042

REACTIONS (1)
  - PAIN IN EXTREMITY [None]
